FAERS Safety Report 4589493-7 (Version None)
Quarter: 2005Q1

REPORT INFORMATION
  Report Type: 
  Country: None (occurrence: None)
  Receive Date: 20050216
  Receipt Date: 20050204
  Transmission Date: 20050727
  Serious: Yes (Other)
  Sender: FDA-Public Use
  Company Number: 2005-BP-01704RO

PATIENT
  Age: 54 Year
  Sex: Female

DRUGS (2)
  1. AZATHIOPRINE [Suspect]
     Indication: SYSTEMIC SCLEROSIS
     Dosage: 50 MG QD (50 MG), PO
     Route: 048
     Dates: start: 20011001
  2. PREDNISONE [Concomitant]

REACTIONS (5)
  - BLISTER [None]
  - BLOOD IMMUNOGLOBULIN G DECREASED [None]
  - DRUG ERUPTION [None]
  - LYMPHOCYTE STIMULATION TEST POSITIVE [None]
  - OEDEMA [None]
